FAERS Safety Report 7251329-3 (Version None)
Quarter: 2011Q1

REPORT INFORMATION
  Report Type: 
  Country: None (occurrence: None)
  Receive Date: 20110128
  Receipt Date: 20110124
  Transmission Date: 20110831
  Serious: Yes (Other)
  Sender: FDA-Public Use
  Company Number: US-B.I. PHARMACEUTICALS,INC./RIDGEFIELD-2010-BP-13546BP

PATIENT
  Age: 55 Year
  Sex: Female

DRUGS (4)
  1. MIRAPEX [Suspect]
     Indication: RESTLESS LEGS SYNDROME
  2. BETASERON [Concomitant]
  3. SYNTHROID [Concomitant]
  4. TRAMADOL [Concomitant]

REACTIONS (9)
  - EMOTIONAL DISORDER [None]
  - MUSCLE SPASMS [None]
  - FEELINGS OF WORTHLESSNESS [None]
  - INSOMNIA [None]
  - NERVOUSNESS [None]
  - PATHOLOGICAL GAMBLING [None]
  - OBSESSIVE-COMPULSIVE DISORDER [None]
  - SUICIDAL IDEATION [None]
  - COMPULSIVE SHOPPING [None]
